FAERS Safety Report 6017479-4 (Version None)
Quarter: 2008Q4

REPORT INFORMATION
  Report Type: 
  Country: None (occurrence: None)
  Receive Date: 20081223
  Receipt Date: 20081218
  Transmission Date: 20090506
  Serious: Yes (Hospitalization, Other)
  Sender: FDA-Public Use
  Company Number: DE-WYE-G02540408

PATIENT
  Age: 53 Year
  Sex: Male

DRUGS (8)
  1. TAVOR [Interacting]
     Route: 048
     Dates: start: 20080301, end: 20080624
  2. TAVOR [Interacting]
     Route: 048
     Dates: start: 20080625, end: 20080630
  3. TAVOR [Interacting]
     Route: 048
     Dates: start: 20080701, end: 20080704
  4. TAVOR [Interacting]
     Dates: start: 20080705, end: 20080721
  5. ACETYLSALICYLIC ACID [Concomitant]
     Indication: MUSCULOSKELETAL PAIN
     Route: 048
     Dates: start: 20070701
  6. DOMINAL [Interacting]
     Route: 048
     Dates: start: 20080711
  7. TREVILOR RETARD [Suspect]
     Indication: DEPRESSION
     Route: 048
     Dates: start: 20080625, end: 20080630
  8. TREVILOR RETARD [Suspect]
     Route: 048
     Dates: start: 20080701

REACTIONS (6)
  - CONCUSSION [None]
  - DRUG DEPENDENCE [None]
  - DRUG INTERACTION [None]
  - FACIAL BONES FRACTURE [None]
  - FALL [None]
  - SYNCOPE [None]
